FAERS Safety Report 7955605-8 (Version None)
Quarter: 2011Q4

REPORT INFORMATION
  Report Type: 
  Country: None (occurrence: None)
  Receive Date: 20111202
  Receipt Date: 20111123
  Transmission Date: 20120403
  Serious: Yes (Other)
  Sender: FDA-Public Use
  Company Number: US-ASTRAZENECA-2010SE08886

PATIENT
  Age: 82 Year
  Sex: Female
  Weight: 91.2 kg

DRUGS (8)
  1. SYMBICORT [Suspect]
     Dosage: 640 MCG DAILY
     Route: 055
     Dates: start: 20090601
  2. SYMBICORT [Suspect]
     Indication: CHRONIC OBSTRUCTIVE PULMONARY DISEASE
     Dosage: 160/4.5 DAILY
     Route: 055
     Dates: start: 20081108
  3. LEVOTHYROXINE SODIUM [Concomitant]
  4. SYMBICORT [Suspect]
     Dosage: 640 MCG DAILY
     Route: 055
     Dates: start: 20090601
  5. GLYBURIDE [Concomitant]
  6. LASIX [Concomitant]
  7. SYMBICORT [Suspect]
     Indication: ASTHMA
     Dosage: 160/4.5 DAILY
     Route: 055
     Dates: start: 20081108
  8. CAPTOPRIL [Concomitant]

REACTIONS (8)
  - ANIMAL SCRATCH [None]
  - INFECTION [None]
  - HAEMORRHAGE [None]
  - PAIN [None]
  - DYSGEUSIA [None]
  - DYSPNOEA [None]
  - WOUND COMPLICATION [None]
  - MUSCLE RUPTURE [None]
